FAERS Safety Report 7150768-9 (Version None)
Quarter: 2010Q4

REPORT INFORMATION
  Report Type: 
  Country: None (occurrence: None)
  Receive Date: 20101124
  Receipt Date: 20101108
  Transmission Date: 20110411
  Serious: Yes (Congenital Anomaly)
  Sender: FDA-Public Use
  Company Number: 1000017364

PATIENT
  Sex: Female

DRUGS (1)
  1. CITALOPRAM HYDROBROMIDE [Suspect]
     Dosage: 40 MG (40 MG, 1 IN 1 D) TRANSPLACENTAL
     Route: 064

REACTIONS (3)
  - DEAFNESS CONGENITAL [None]
  - DEAFNESS NEUROSENSORY [None]
  - MATERNAL DRUGS AFFECTING FOETUS [None]
